FAERS Safety Report 6572212-2 (Version None)
Quarter: 2010Q1

REPORT INFORMATION
  Report Type: 
  Country: None (occurrence: None)
  Receive Date: 20100205
  Receipt Date: 20100125
  Transmission Date: 20100710
  Serious: Yes (Hospitalization)
  Sender: FDA-Public Use
  Company Number: ES-WATSON-2010-01016

PATIENT
  Age: 2 Month
  Sex: Male

DRUGS (1)
  1. MICROZIDE [Suspect]
     Indication: NEPHROGENIC DIABETES INSIPIDUS
     Dosage: 2 MG/KG TWICE A DAY
     Route: 065

REACTIONS (2)
  - HYPONATRAEMIA [None]
  - WATER INTOXICATION [None]
